APPROVED DRUG PRODUCT: HYDROCODONE BITARTRATE AND ACETAMINOPHEN
Active Ingredient: ACETAMINOPHEN; HYDROCODONE BITARTRATE
Strength: 500MG;2.5MG
Dosage Form/Route: TABLET;ORAL
Application: A081079 | Product #001
Applicant: WATSON LABORATORIES INC
Approved: Aug 30, 1991 | RLD: No | RS: No | Type: DISCN